FAERS Safety Report 15020757 (Version 3)
Quarter: 2018Q3

REPORT INFORMATION
  Report Type: Report from Study
  Country: US (occurrence: US)
  Receive Date: 20180618
  Receipt Date: 20180920
  Transmission Date: 20181010
  Serious: No
  Sender: FDA-Public Use
  Company Number: PHEH2018US021820

PATIENT
  Age: 29 Year
  Sex: Female

DRUGS (1)
  1. COSENTYX [Suspect]
     Active Substance: SECUKINUMAB
     Indication: PRODUCT USED FOR UNKNOWN INDICATION
     Dosage: 300 MG, QW
     Route: 058
     Dates: start: 20180604

REACTIONS (2)
  - Accidental exposure to product [Unknown]
  - Device malfunction [Unknown]

NARRATIVE: CASE EVENT DATE: 20180604
